FAERS Safety Report 23758544 (Version 1)
Quarter: 2024Q2

REPORT INFORMATION
  Report Type: Spontaneous
  Country: US (occurrence: US)
  Receive Date: 20240418
  Receipt Date: 20240418
  Transmission Date: 20240716
  Serious: No
  Sender: FDA-Public Use
  Company Number: US-Blueprint Medicines Corporation-3170

PATIENT
  Sex: Female

DRUGS (1)
  1. AYVAKIT [Suspect]
     Active Substance: AVAPRITINIB
     Indication: Advanced systemic mastocytosis
     Route: 065
     Dates: start: 20210805

REACTIONS (13)
  - Iron deficiency [Unknown]
  - Vitamin B12 decreased [Unknown]
  - Brain fog [Unknown]
  - Aphasia [Unknown]
  - Vision blurred [Unknown]
  - Lacrimation increased [Unknown]
  - Contusion [Unknown]
  - Peripheral swelling [Unknown]
  - Gait disturbance [Unknown]
  - Fatigue [Unknown]
  - Inflammation [Unknown]
  - Weight increased [Unknown]
  - Hypotension [Unknown]
